FAERS Safety Report 10977059 (Version 1)
Quarter: 2015Q2

REPORT INFORMATION
  Report Type: Report from Study
  Country: CA (occurrence: CA)
  Receive Date: 20150402
  Receipt Date: 20150402
  Transmission Date: 20150821
  Serious: Yes (Death, Hospitalization)
  Sender: FDA-Public Use
  Company Number: CA-JNJFOC-20150219358

PATIENT
  Sex: Female

DRUGS (2)
  1. TYLENOL [Suspect]
     Active Substance: ACETAMINOPHEN
     Route: 065
  2. TYLENOL [Suspect]
     Active Substance: ACETAMINOPHEN
     Indication: PRODUCT USED FOR UNKNOWN INDICATION
     Dosage: OVERDOSE
     Route: 065
     Dates: start: 20070530, end: 20070612

REACTIONS (7)
  - Brain herniation [Fatal]
  - Brain oedema [Fatal]
  - Haemodynamic instability [Unknown]
  - Respiratory failure [Unknown]
  - Hepatic encephalopathy [Unknown]
  - Acute kidney injury [Unknown]
  - Overdose [Unknown]

NARRATIVE: CASE EVENT DATE: 2007
